FAERS Safety Report 19591659 (Version 7)
Quarter: 2021Q4

REPORT INFORMATION
  Report Type: Spontaneous
  Country: US (occurrence: US)
  Receive Date: 20210721
  Receipt Date: 20211104
  Transmission Date: 20220303
  Serious: Yes (Other)
  Sender: FDA-Public Use
  Company Number: US-JNJFOC-20210734073

PATIENT
  Sex: Male

DRUGS (4)
  1. UPTRAVI [Suspect]
     Active Substance: SELEXIPAG
     Indication: Product used for unknown indication
     Route: 065
  2. AMBRISENTAN [Suspect]
     Active Substance: AMBRISENTAN
     Indication: Pulmonary hypertension
     Route: 048
     Dates: start: 20210120
  3. PREDNISONE [Suspect]
     Active Substance: PREDNISONE
     Indication: Lower respiratory tract infection
     Route: 065
  4. METOPROLOL [Concomitant]
     Active Substance: METOPROLOL

REACTIONS (37)
  - Pneumonia [Unknown]
  - Lower respiratory tract infection [Not Recovered/Not Resolved]
  - Poor quality sleep [Not Recovered/Not Resolved]
  - Heart rate increased [Not Recovered/Not Resolved]
  - Wheezing [Unknown]
  - Joint swelling [Not Recovered/Not Resolved]
  - Arthralgia [Not Recovered/Not Resolved]
  - Abdominal pain upper [Unknown]
  - Abdominal pain upper [Unknown]
  - Inflammation [Not Recovered/Not Resolved]
  - Chest discomfort [Unknown]
  - Chest pain [Unknown]
  - Pruritus [Unknown]
  - Fatigue [Unknown]
  - Anxiety [Unknown]
  - Increased appetite [Unknown]
  - Decreased appetite [Unknown]
  - Weight increased [Not Recovered/Not Resolved]
  - Tachycardia [Unknown]
  - Diarrhoea [Unknown]
  - Nausea [Unknown]
  - Laryngitis [Recovering/Resolving]
  - Dyspnoea [Unknown]
  - Dizziness [Unknown]
  - Hypersensitivity [Not Recovered/Not Resolved]
  - Palpitations [Unknown]
  - Secretion discharge [Not Recovered/Not Resolved]
  - Cough [Not Recovered/Not Resolved]
  - Fluid retention [Not Recovered/Not Resolved]
  - Sinus polyp [Not Recovered/Not Resolved]
  - Upper-airway cough syndrome [Not Recovered/Not Resolved]
  - Gastrooesophageal reflux disease [Not Recovered/Not Resolved]
  - Blood calcium decreased [Unknown]
  - Tooth disorder [Unknown]
  - Abdominal discomfort [Unknown]
  - Oxygen saturation decreased [Recovering/Resolving]
  - Peripheral swelling [Unknown]

NARRATIVE: CASE EVENT DATE: 20210101
